FAERS Safety Report 18463894 (Version 2)
Quarter: 2020Q4

REPORT INFORMATION
  Report Type: Spontaneous
  Country: US (occurrence: US)
  Receive Date: 20201104
  Receipt Date: 20201120
  Transmission Date: 20210114
  Serious: Yes (Death)
  Sender: FDA-Public Use
  Company Number: US-VERTEX PHARMACEUTICALS-2020-021549

PATIENT
  Age: 51 Year
  Sex: Female
  Weight: 83 kg

DRUGS (13)
  1. VITAMIN E [Concomitant]
     Active Substance: .ALPHA.-TOCOPHEROL
     Dosage: 200 UNIT
  2. PULMOZYME [Concomitant]
     Active Substance: DORNASE ALFA
  3. PULMICORT TURBUHALER [Concomitant]
     Active Substance: BUDESONIDE
  4. TRIKAFTA [Suspect]
     Active Substance: ELEXACAFTOR\IVACAFTOR\TEZACAFTOR
     Indication: CYSTIC FIBROSIS
     Dosage: 2 ORANGE TABS (100 MG ELEXA/ 50 MG TEZA/ 75 MG IVA) IN AM AND 1 BLUE TAB (150 MG IVA) IN PM
     Route: 048
  5. HUMALOG [Concomitant]
     Active Substance: INSULIN LISPRO
  6. CAYSTON [Concomitant]
     Active Substance: AZTREONAM
  7. COLISTIMETHATE [Concomitant]
     Active Substance: COLISTIMETHATE SODIUM
  8. TRESIBA [Concomitant]
     Active Substance: INSULIN DEGLUDEC
  9. DUPIXENT [Concomitant]
     Active Substance: DUPILUMAB
  10. FAMOTIDINE. [Concomitant]
     Active Substance: FAMOTIDINE
  11. LEXAPRO [Concomitant]
     Active Substance: ESCITALOPRAM OXALATE
  12. NORCO [Concomitant]
     Active Substance: ACETAMINOPHEN\HYDROCODONE BITARTRATE
  13. PREDNISONE. [Concomitant]
     Active Substance: PREDNISONE

REACTIONS (1)
  - Death [Fatal]

NARRATIVE: CASE EVENT DATE: 20201024
